FAERS Safety Report 18567838 (Version 2)
Quarter: 2025Q3

REPORT INFORMATION
  Report Type: Spontaneous
  Country: GB (occurrence: GB)
  Receive Date: 20201202
  Receipt Date: 20250701
  Transmission Date: 20251021
  Serious: Yes (Death, Hospitalization, Other)
  Sender: AUROBINDO
  Company Number: GB-PFIZER INC-2020457141

PATIENT
  Age: 65 Year
  Sex: Female

DRUGS (6)
  1. CIPROFLOXACIN [Interacting]
     Active Substance: CIPROFLOXACIN
     Indication: Lower respiratory tract infection
     Dosage: 250 MILLIGRAM, TWO TIMES A DAY
     Route: 065
  2. TAMOXIFEN [Suspect]
     Active Substance: TAMOXIFEN
     Indication: Breast cancer
     Dosage: 40 MILLIGRAM, ONCE A DAY (FOR MORE THAN A YEAR)
     Route: 065
  3. THEOPHYLLINE ANHYDROUS [Interacting]
     Active Substance: THEOPHYLLINE ANHYDROUS
     Indication: Lower respiratory tract infection
     Dosage: 600 MILLIGRAM, ONCE A DAY (SLOW RELEASE)
     Route: 065
  4. BUMETANIDE [Concomitant]
     Active Substance: BUMETANIDE
     Indication: Product used for unknown indication
     Dosage: 1 MILLIGRAM, ONCE A DAY (FOR MORE THAN A YEAR)
     Route: 065
  5. DIGOXIN [Concomitant]
     Active Substance: DIGOXIN
     Indication: Atrial fibrillation
     Dosage: 0.25 MILLIGRAM, ONCE A DAY (FOR MORE THAN A YEAR)
     Route: 042
  6. DIAZEPAM [Concomitant]
     Active Substance: DIAZEPAM
     Indication: Atrial fibrillation
     Route: 058

REACTIONS (7)
  - Drug interaction [Fatal]
  - Loss of consciousness [Fatal]
  - Atrial fibrillation [Fatal]
  - Liver function test abnormal [Fatal]
  - Neutrophilia [Fatal]
  - Epilepsy [Fatal]
  - Cardiomegaly [Fatal]
